FAERS Safety Report 4976828-6 (Version None)
Quarter: 2006Q2

REPORT INFORMATION
  Report Type: 
  Country: None (occurrence: None)
  Receive Date: 20060418
  Receipt Date: 20060418
  Transmission Date: 20061013
  Serious: Yes (Hospitalization)
  Sender: FDA-Public Use
  Company Number: None

PATIENT
  Age: 63 Year
  Sex: Female

DRUGS (1)
  1. MALARONE [Suspect]
     Indication: MALARIA
     Dosage: 250/100 1 EVERY24 HRS PO
     Route: 048
     Dates: start: 20060316, end: 20060325

REACTIONS (1)
  - UNEVALUABLE EVENT [None]
